FAERS Safety Report 20039131 (Version 1)
Quarter: 2021Q4

REPORT INFORMATION
  Report Type: Spontaneous
  Country: US (occurrence: US)
  Receive Date: 20211105
  Receipt Date: 20211105
  Transmission Date: 20220303
  Serious: Yes (Other)
  Sender: FDA-Public Use
  Company Number: US-BRISTOL-MYERS SQUIBB COMPANY-BMS-2021-115711

PATIENT
  Age: 41 Year
  Sex: Male

DRUGS (2)
  1. IPILIMUMAB [Suspect]
     Active Substance: IPILIMUMAB
     Indication: Malignant melanoma
     Dosage: 10 MG/KG
     Route: 065
  2. DABRAFENIB\TRAMETINIB [Suspect]
     Active Substance: DABRAFENIB\TRAMETINIB
     Indication: Malignant melanoma
     Dosage: 100 MG BID/2 MG QD
     Route: 065

REACTIONS (1)
  - Uveitis [Recovered/Resolved]
